FAERS Safety Report 21415010 (Version 3)
Quarter: 2022Q4

REPORT INFORMATION
  Report Type: Report from Study
  Country: US (occurrence: US)
  Receive Date: 20221006
  Receipt Date: 20221221
  Transmission Date: 20230112
  Serious: Yes (Other)
  Sender: FDA-Public Use
  Company Number: US-ABBVIE-4137103

PATIENT
  Sex: Female

DRUGS (1)
  1. HUMIRA [Suspect]
     Active Substance: ADALIMUMAB
     Indication: Rheumatoid arthritis
     Dosage: CITRATE FREE, STRENGTH 40 MILLIGRAM
     Route: 058
     Dates: start: 20220122

REACTIONS (15)
  - Carpal tunnel syndrome [Recovering/Resolving]
  - Nausea [Not Recovered/Not Resolved]
  - Musculoskeletal stiffness [Not Recovered/Not Resolved]
  - Migraine [Not Recovered/Not Resolved]
  - Gastrooesophageal reflux disease [Not Recovered/Not Resolved]
  - Arthralgia [Not Recovered/Not Resolved]
  - Gastric disorder [Unknown]
  - Insomnia [Recovering/Resolving]
  - Varicose vein [Unknown]
  - Pain [Not Recovered/Not Resolved]
  - Malaise [Unknown]
  - Pain [Unknown]
  - Mobility decreased [Unknown]
  - Peripheral swelling [Not Recovered/Not Resolved]
  - Musculoskeletal stiffness [Unknown]
